FAERS Safety Report 6018065-2 (Version None)
Quarter: 2008Q4

REPORT INFORMATION
  Report Type: 
  Country: None (occurrence: None)
  Receive Date: 20081223
  Receipt Date: 20081215
  Transmission Date: 20090506
  Serious: Yes (Hospitalization)
  Sender: FDA-Public Use
  Company Number: FR-PFIZER INC-2008155615

PATIENT

DRUGS (6)
  1. INSPRA [Suspect]
     Dosage: 25 MG, UNK
     Route: 048
     Dates: end: 20081017
  2. DIGOXIN [Suspect]
     Route: 048
     Dates: end: 20081017
  3. TEMESTA [Concomitant]
     Dosage: 1 DF, 1X/DAY
     Route: 048
  4. ESCITALOPRAM OXALATE [Concomitant]
     Dosage: 10 MG, 2X/DAY
     Route: 048
  5. COVERSYL [Concomitant]
     Dosage: 2 MG, UNK
     Route: 048
  6. FUROSEMIDE [Concomitant]
     Dosage: UNK
     Route: 048

REACTIONS (1)
  - HEART RATE ABNORMAL [None]
